FAERS Safety Report 5942775-6 (Version None)
Quarter: 2008Q4

REPORT INFORMATION
  Report Type: 
  Country: None (occurrence: None)
  Receive Date: 20081103
  Receipt Date: 20081020
  Transmission Date: 20090506
  Serious: No
  Sender: FDA-Public Use
  Company Number: US024919

PATIENT
  Sex: Female

DRUGS (3)
  1. FENTORA [Suspect]
     Indication: MIGRAINE
     Dosage: 400 UG BUCCAL
     Route: 002
  2. KADIAN [Concomitant]
  3. MORPHINE SULFATE [Concomitant]

REACTIONS (2)
  - DRUG PRESCRIBING ERROR [None]
  - MEDICATION ERROR [None]
